FAERS Safety Report 17307570 (Version 10)
Quarter: 2021Q1

REPORT INFORMATION
  Report Type: Other
  Country: US (occurrence: US)
  Receive Date: 20200123
  Receipt Date: 20210304
  Transmission Date: 20210419
  Serious: Yes (Other)
  Sender: FDA-Public Use
  Company Number: US-ROCHE-2525747

PATIENT
  Age: 51 Year
  Sex: Female
  Weight: 79.45 kg

DRUGS (23)
  1. OCREVUS [Suspect]
     Active Substance: OCRELIZUMAB
     Indication: PRIMARY PROGRESSIVE MULTIPLE SCLEROSIS
     Route: 042
     Dates: start: 20200207
  2. CLONAZEPAM. [Suspect]
     Active Substance: CLONAZEPAM
     Indication: PRODUCT USED FOR UNKNOWN INDICATION
     Dosage: 1 TAB 3 TIMES DAY
     Route: 065
  3. MYRBETRIQ [Concomitant]
     Active Substance: MIRABEGRON
     Indication: MICTURITION URGENCY
     Route: 048
  4. CYCLOBENZAPRINE. [Concomitant]
     Active Substance: CYCLOBENZAPRINE
     Indication: PAIN
     Route: 048
  5. OCREVUS [Suspect]
     Active Substance: OCRELIZUMAB
     Indication: MULTIPLE SCLEROSIS
     Route: 042
     Dates: start: 201905
  6. OCREVUS [Suspect]
     Active Substance: OCRELIZUMAB
     Indication: RELAPSING MULTIPLE SCLEROSIS
     Route: 042
     Dates: start: 20190524
  7. REMERON [Concomitant]
     Active Substance: MIRTAZAPINE
  8. BENADRYL [Concomitant]
     Active Substance: DIPHENHYDRAMINE HYDROCHLORIDE
     Indication: PREMEDICATION
     Route: 042
     Dates: start: 20200812, end: 20200812
  9. MIRTAZAPINE. [Concomitant]
     Active Substance: MIRTAZAPINE
     Route: 048
  10. AMPHETAMINE SULFATE. [Concomitant]
     Active Substance: AMPHETAMINE SULFATE
     Dosage: ORAL 1 TAB DAILY
     Route: 048
  11. ADDERALL [Concomitant]
     Active Substance: AMPHETAMINE ASPARTATE\AMPHETAMINE SULFATE\DEXTROAMPHETAMINE SACCHARATE\DEXTROAMPHETAMINE SULFATE
  12. CAYENNE [Concomitant]
     Active Substance: CAPSICUM\HERBALS
     Route: 048
  13. VITAMIN D3 [Concomitant]
     Active Substance: CHOLECALCIFEROL
     Route: 048
  14. FLAXSEED [Concomitant]
     Active Substance: FLAX SEED
     Route: 048
  15. COLLAGEN [Concomitant]
     Active Substance: COLLAGEN
     Dosage: 2 PILLS AM + 2 PILLS AT PM
     Route: 048
  16. AMPHETAMINE [Concomitant]
     Active Substance: AMPHETAMINE
     Indication: ANXIETY
  17. APPLE CIDER VINEGAR [Concomitant]
     Active Substance: APPLE CIDER VINEGAR
     Route: 048
  18. CRANBERRY EXTRACT [Concomitant]
     Active Substance: CRANBERRY
     Route: 048
  19. OCREVUS [Suspect]
     Active Substance: OCRELIZUMAB
     Route: 042
  20. AMPHETAMINE [Concomitant]
     Active Substance: AMPHETAMINE
     Indication: DEPRESSION
     Route: 048
  21. ATORVASTATIN [Concomitant]
     Active Substance: ATORVASTATIN
     Indication: BLOOD CHOLESTEROL INCREASED
     Route: 048
  22. FLEXERIL [Concomitant]
     Active Substance: CYCLOBENZAPRINE HYDROCHLORIDE
  23. VITAMIN D3 [Concomitant]
     Active Substance: CHOLECALCIFEROL
     Route: 048

REACTIONS (14)
  - Gait disturbance [Unknown]
  - Limb discomfort [Recovered/Resolved]
  - Constipation [Unknown]
  - Varicella zoster virus infection [Unknown]
  - Asthenia [Unknown]
  - Neurogenic bladder [Unknown]
  - Urinary tract infection [Unknown]
  - Cognitive disorder [Unknown]
  - Skin tightness [Recovered/Resolved]
  - Multiple sclerosis [Unknown]
  - Paraesthesia [Recovered/Resolved]
  - Pain in extremity [Recovered/Resolved]
  - Throat tightness [Recovered/Resolved]
  - Peripheral swelling [Recovered/Resolved]

NARRATIVE: CASE EVENT DATE: 20200206
